FAERS Safety Report 8125199-5 (Version None)
Quarter: 2012Q1

REPORT INFORMATION
  Report Type: 
  Country: None (occurrence: None)
  Receive Date: 20120209
  Receipt Date: 20120202
  Transmission Date: 20120608
  Serious: No
  Sender: FDA-Public Use
  Company Number: US-BAYER-2012-012686

PATIENT
  Sex: Female

DRUGS (1)
  1. DOMEBORO [Suspect]
     Route: 048

REACTIONS (1)
  - DRY SKIN [None]
